FAERS Safety Report 7434625-6 (Version None)
Quarter: 2011Q2

REPORT INFORMATION
  Report Type: 
  Country: None (occurrence: None)
  Receive Date: 20110425
  Receipt Date: 20110407
  Transmission Date: 20111010
  Serious: Yes (Hospitalization)
  Sender: FDA-Public Use
  Company Number: CH-AMGEN-CHECT2011020333

PATIENT
  Age: 59 Year
  Sex: Female
  Weight: 99 kg

DRUGS (8)
  1. DAFALGAN                           /00020001/ [Concomitant]
     Dosage: UNK
     Route: 065
     Dates: start: 20100505
  2. ETANERCEPT [Suspect]
     Dosage: 50 MG, UNSPECIFIED FREQUENCY
     Route: 058
     Dates: start: 20100518, end: 20100722
  3. PANTOZOL                           /01263202/ [Concomitant]
     Dosage: UNK
     Route: 065
     Dates: start: 20100421
  4. FRAXIPARIN                         /00889603/ [Concomitant]
     Dosage: UNK
     Route: 058
     Dates: start: 20100611, end: 20100611
  5. FRAXIPARIN                         /00889603/ [Concomitant]
     Dosage: UNK
     Route: 058
     Dates: start: 20100623, end: 20100623
  6. DAFALGAN                           /00020001/ [Concomitant]
     Dosage: UNK
     Dates: start: 20100301
  7. ETANERCEPT [Suspect]
     Indication: RHEUMATOID ARTHRITIS
     Dosage: 50 MG, QWK
     Route: 058
     Dates: start: 20100430, end: 20100722
  8. METHOTREXATE SODIUM [Suspect]
     Indication: RHEUMATOID ARTHRITIS
     Dosage: 10-25 MG ONCE WEEKLY
     Route: 048
     Dates: start: 20100430, end: 20100722

REACTIONS (3)
  - SYSTEMIC SCLEROSIS [None]
  - HEPATIC STEATOSIS [None]
  - GASTRITIS EROSIVE [None]
